FAERS Safety Report 10102302 (Version 7)
Quarter: 2016Q4

REPORT INFORMATION
  Report Type: Spontaneous
  Country: US (occurrence: US)
  Receive Date: 20140424
  Receipt Date: 20161019
  Transmission Date: 20170206
  Serious: Yes (Hospitalization, Other)
  Sender: FDA-Public Use
  Company Number: US-009507513-1202USA00432

PATIENT
  Sex: Male
  Weight: 75.28 kg

DRUGS (1)
  1. PROPECIA [Suspect]
     Active Substance: FINASTERIDE
     Indication: ANDROGENETIC ALOPECIA
     Dosage: 1 MG, UNK
     Route: 048
     Dates: start: 20070104, end: 20070204

REACTIONS (15)
  - Malignant melanoma [Unknown]
  - Organic erectile dysfunction [Unknown]
  - Sexual dysfunction [Unknown]
  - Testicular pain [Unknown]
  - Cushing^s syndrome [Unknown]
  - Prostatitis [Unknown]
  - Libido decreased [Unknown]
  - Hernia repair [Unknown]
  - Cognitive disorder [Not Recovered/Not Resolved]
  - Depression [Not Recovered/Not Resolved]
  - Pyuria [Unknown]
  - Mole excision [Unknown]
  - Erectile dysfunction [Recovering/Resolving]
  - Anxiety [Not Recovered/Not Resolved]
  - Panic attack [Unknown]

NARRATIVE: CASE EVENT DATE: 20070213
